FAERS Safety Report 20209111 (Version 4)
Quarter: 2022Q1

REPORT INFORMATION
  Report Type: Report from Study
  Country: CL (occurrence: CL)
  Receive Date: 20211220
  Receipt Date: 20220110
  Transmission Date: 20220423
  Serious: Yes (Death, Life-Threatening, Hospitalization, Other)
  Sender: FDA-Public Use
  Company Number: CL-BRISTOL-MYERS SQUIBB COMPANY-BMS-2021-136611

PATIENT
  Age: 67 Year
  Sex: Male
  Weight: 162 kg

DRUGS (6)
  1. RELATLIMAB [Suspect]
     Active Substance: RELATLIMAB
     Indication: Non-small cell lung cancer
     Dosage: 100 MILLILITER
     Route: 042
     Dates: start: 20211209, end: 20211209
  2. NIVOLUMAB [Suspect]
     Active Substance: NIVOLUMAB
     Indication: Non-small cell lung cancer
     Dosage: 100 MILLILITER
     Route: 042
     Dates: start: 20211209, end: 20211209
  3. CARBOPLATIN [Suspect]
     Active Substance: CARBOPLATIN
     Indication: Non-small cell lung cancer
     Dosage: 502 MILLIGRAM
     Route: 065
     Dates: start: 20211209, end: 20211209
  4. PEMETREXED DISODIUM [Suspect]
     Active Substance: PEMETREXED DISODIUM
     Indication: Non-small cell lung cancer
     Dosage: 805 MILLIGRAM; 500 MG/M2
     Route: 065
     Dates: start: 20211209, end: 20211209
  5. ACETAMINOPHEN [Concomitant]
     Active Substance: ACETAMINOPHEN
     Indication: Product used for unknown indication
     Dosage: 1 GRAM; AS NEEDED
     Route: 048
     Dates: start: 20211006
  6. ONDANSETRON [Concomitant]
     Active Substance: ONDANSETRON
     Indication: Product used for unknown indication
     Dosage: 1 DOSAGE FORM= 3 UNITS NOS
     Route: 048
     Dates: start: 20211006

REACTIONS (2)
  - Pneumonia [Fatal]
  - Neutropenia [Recovering/Resolving]

NARRATIVE: CASE EVENT DATE: 20211211
